FAERS Safety Report 10572790 (Version 1)
Quarter: 2014Q4

REPORT INFORMATION
  Report Type: Spontaneous
  Country: US (occurrence: None)
  Receive Date: 20141107
  Receipt Date: 20141107
  Transmission Date: 20150529
  Serious: No
  Sender: FDA-Public Use
  Company Number: None

PATIENT
  Age: 57 Year
  Sex: Male

DRUGS (6)
  1. SOVALDI [Suspect]
     Active Substance: SOFOSBUVIR
     Indication: CHRONIC HEPATITIS
     Route: 048
     Dates: start: 20140815
  2. PEGASYS [Concomitant]
     Active Substance: PEGINTERFERON ALFA-2A
  3. VITAMIN B12 [Concomitant]
     Active Substance: CYANOCOBALAMIN
  4. RIBASPHERE [Concomitant]
     Active Substance: RIBAVIRIN
  5. MULTIVITAMIN [Concomitant]
     Active Substance: VITAMINS
  6. SOVALDI [Concomitant]
     Active Substance: SOFOSBUVIR

REACTIONS (4)
  - Weight decreased [None]
  - Fatigue [None]
  - Decreased appetite [None]
  - Dry mouth [None]
